FAERS Safety Report 18211582 (Version 1)
Quarter: 2020Q3

REPORT INFORMATION
  Report Type: Spontaneous
  Country: CN (occurrence: CN)
  Receive Date: 20200831
  Receipt Date: 20200831
  Transmission Date: 20201103
  Serious: Yes (Other)
  Sender: FDA-Public Use
  Company Number: CN-LUPIN PHARMACEUTICALS INC.-2020-05122

PATIENT
  Age: 48 Year
  Sex: Male

DRUGS (5)
  1. HYDROXYCHLOROQUINE [Suspect]
     Active Substance: HYDROXYCHLOROQUINE
     Indication: COVID-19
     Dosage: 0.4 MILLIGRAM, QD
     Route: 048
     Dates: start: 2020
  2. ARBIDOL [Concomitant]
     Active Substance: UMIFENOVIR
     Indication: COVID-19
     Dosage: 0.2 GRAM, TID
     Route: 048
     Dates: start: 2020
  3. THYMALFASIN [Concomitant]
     Active Substance: THYMALFASIN
     Indication: COVID-19
     Dosage: 1.6 MILLIGRAM, DAY TO TWICE PER WEEK ACCORDING TO PATIENT^S RESPONSE
     Route: 030
     Dates: start: 2020
  4. LOPINAVIR/RITONAVIR [Concomitant]
     Active Substance: LOPINAVIR\RITONAVIR
     Indication: COVID-19
     Dosage: 500 MILLIGRAM, BID
     Route: 048
     Dates: start: 2020
  5. INTERFERON ALFA NOS [Concomitant]
     Active Substance: INTERFERON ALFA-2A OR INTERFERON ALFA-2B
     Indication: COVID-19
     Dosage: 500 INTERNATIONAL UNIT, BID
     Dates: start: 2020

REACTIONS (1)
  - Off label use [Unknown]
